FAERS Safety Report 6918616-7 (Version None)
Quarter: 2010Q3

REPORT INFORMATION
  Report Type: 
  Country: None (occurrence: None)
  Receive Date: 20100811
  Receipt Date: 20100730
  Transmission Date: 20110219
  Serious: Yes (Hospitalization, Other)
  Sender: FDA-Public Use
  Company Number: JP-PFIZER INC-2010082659

PATIENT
  Age: 58 Year
  Sex: Male
  Weight: 51 kg

DRUGS (2)
  1. GENOTROPIN [Suspect]
     Indication: GROWTH HORMONE DEFICIENCY
     Dosage: 0.1 MG, 1X/DAY
     Route: 058
     Dates: start: 20070920
  2. GENOTROPIN [Suspect]
     Dosage: 0.2 MG, 1X/DAY
     Route: 058
     Dates: start: 20090513, end: 20100701

REACTIONS (1)
  - PITUITARY TUMOUR BENIGN [None]
